FAERS Safety Report 7525716-X (Version None)
Quarter: 2011Q2

REPORT INFORMATION
  Report Type: 
  Country: None (occurrence: None)
  Receive Date: 20110606
  Receipt Date: 20110601
  Transmission Date: 20111010
  Serious: Yes (Death)
  Sender: FDA-Public Use
  Company Number: PHHY2011US46070

PATIENT
  Sex: Female
  Weight: 81 kg

DRUGS (7)
  1. EXJADE [Suspect]
     Indication: SICKLE CELL ANAEMIA
     Dosage: 1500 MG, DAILY
     Route: 048
     Dates: start: 20101222
  2. EXJADE [Suspect]
     Indication: IRON OVERLOAD
  3. LORTAB [Concomitant]
  4. SENSIPAR [Concomitant]
  5. RENAGEL [Concomitant]
  6. DILAUDID [Concomitant]
     Dosage: UNK
  7. EXJADE [Suspect]
     Indication: TRANSFUSION

REACTIONS (1)
  - DEATH [None]
